FAERS Safety Report 6460733-2 (Version None)
Quarter: 2009Q4

REPORT INFORMATION
  Report Type: 
  Country: None (occurrence: None)
  Receive Date: 20091125
  Receipt Date: 20091125
  Transmission Date: 20100525
  Serious: Yes (Other)
  Sender: FDA-Public Use
  Company Number: None

PATIENT
  Age: 49 Year
  Sex: Female
  Weight: 117.9352 kg

DRUGS (6)
  1. CIPROFLOXACIN HCL [Suspect]
     Indication: ABDOMINAL INFECTION
     Dosage: 1 TABLET -500MG- 2X DAILY PO
     Route: 048
     Dates: start: 20090929, end: 20091008
  2. CIPROFLOXACIN HCL [Suspect]
     Indication: ABDOMINAL INFECTION
     Dosage: 1 TABLET -500MG- 2X DAILY PO
     Route: 048
     Dates: start: 20091027, end: 20091030
  3. CELEBREX [Concomitant]
  4. PROZAC [Concomitant]
  5. WELLBUTRIN [Concomitant]
  6. LEVOTHYROXINE SODIUM [Concomitant]

REACTIONS (3)
  - ARTHRALGIA [None]
  - MYALGIA [None]
  - TENDON PAIN [None]
